FAERS Safety Report 17134390 (Version 1)
Quarter: 2019Q4

REPORT INFORMATION
  Report Type: Spontaneous
  Country: FR (occurrence: FR)
  Receive Date: 20191210
  Receipt Date: 20191210
  Transmission Date: 20200122
  Serious: Yes (Hospitalization)
  Sender: FDA-Public Use
  Company Number: FR-MYLANLABS-2019M1120023

PATIENT
  Age: 86 Year
  Sex: Female

DRUGS (5)
  1. IOMERON [Suspect]
     Active Substance: IOMEPROL
     Indication: IMAGING PROCEDURE
     Dosage: INCONNUE
     Route: 042
     Dates: start: 20190104, end: 20190104
  2. VANCOMYCIN [Suspect]
     Active Substance: VANCOMYCIN
     Indication: STAPHYLOCOCCAL INFECTION
     Dosage: INCONNUE
     Route: 042
     Dates: start: 20190102, end: 20190106
  3. GENTAMICINE                        /00047101/ [Suspect]
     Active Substance: GENTAMICIN
     Indication: STAPHYLOCOCCAL INFECTION
     Dosage: 420 MILLIGRAM
     Route: 042
     Dates: start: 20190104, end: 20190104
  4. CARDENSIEL [Concomitant]
     Active Substance: BISOPROLOL FUMARATE
     Dosage: UNK
     Route: 048
  5. COUMADINE [Concomitant]
     Active Substance: WARFARIN SODIUM
     Dosage: UNK
     Route: 048

REACTIONS (1)
  - Acute kidney injury [Recovered/Resolved]

NARRATIVE: CASE EVENT DATE: 20190110
